FAERS Safety Report 7818955-1 (Version None)
Quarter: 2011Q4

REPORT INFORMATION
  Report Type: 
  Country: None (occurrence: None)
  Receive Date: 20111017
  Receipt Date: 20111017
  Transmission Date: 20120403
  Serious: Yes (Other)
  Sender: FDA-Public Use
  Company Number: None

PATIENT
  Sex: Female

DRUGS (1)
  1. XOLAIR [Suspect]
     Dosage: 375MG Q2W SUBQ
     Route: 058
     Dates: start: 20110908, end: 20110908

REACTIONS (1)
  - DRUG HYPERSENSITIVITY [None]
